FAERS Safety Report 9778085 (Version 2)
Quarter: 2013Q4

REPORT INFORMATION
  Report Type: Report from Study
  Country: DE (occurrence: DE)
  Receive Date: 20131223
  Receipt Date: 20131228
  Transmission Date: 20140711
  Serious: Yes (Hospitalization, Other)
  Sender: FDA-Public Use
  Company Number: DE-ROCHE-1322797

PATIENT
  Age: 69 Year
  Sex: Male
  Weight: 78 kg

DRUGS (2)
  1. TOCILIZUMAB [Suspect]
     Indication: RHEUMATOID ARTHRITIS
     Route: 042
     Dates: start: 20121102
  2. ARAVA [Suspect]
     Indication: PRODUCT USED FOR UNKNOWN INDICATION
     Route: 065

REACTIONS (3)
  - Bursitis [Recovered/Resolved]
  - Erysipelas [Recovered/Resolved]
  - Ulcer [Recovering/Resolving]
